FAERS Safety Report 8131353-9 (Version None)
Quarter: 2012Q1

REPORT INFORMATION
  Report Type: 
  Country: None (occurrence: None)
  Receive Date: 20120210
  Receipt Date: 20120210
  Transmission Date: 20120608
  Serious: Yes (Hospitalization)
  Sender: FDA-Public Use
  Company Number: None

PATIENT
  Age: 58 Year
  Sex: Male
  Weight: 159.1 kg

DRUGS (2)
  1. LURASIDONE HYDROCHLORIDE [Suspect]
     Indication: PSYCHOTIC DISORDER
     Dosage: 80 MG EVERY DAY PO
     Route: 048
     Dates: start: 20111006
  2. OLANZAPINE [Suspect]
     Indication: PSYCHOTIC DISORDER
     Dosage: 12.5 MG EVERY DAY PO
     Route: 048
     Dates: start: 20110602, end: 20111116

REACTIONS (4)
  - HALLUCINATION, AUDITORY [None]
  - PARKINSONIAN REST TREMOR [None]
  - DYSPHEMIA [None]
  - HALLUCINATION, VISUAL [None]
